FAERS Safety Report 4475462-4 (Version None)
Quarter: 2004Q4

REPORT INFORMATION
  Report Type: 
  Country: None (occurrence: None)
  Receive Date: 20041014
  Receipt Date: 20041014
  Transmission Date: 20050328
  Serious: Yes (Other)
  Sender: FDA-Public Use
  Company Number: None

PATIENT
  Age: 45 Month
  Sex: Female
  Weight: 63.5036 kg

DRUGS (1)
  1. ZOLOFT [Suspect]
     Indication: ANXIETY
     Dosage: ONCE DAY ORAL
     Route: 048
     Dates: start: 20040905, end: 20041010

REACTIONS (7)
  - CHILLS [None]
  - DRUG WITHDRAWAL SYNDROME [None]
  - HOT FLUSH [None]
  - INFLUENZA LIKE ILLNESS [None]
  - IRRITABILITY [None]
  - MUSCULOSKELETAL DISCOMFORT [None]
  - MYALGIA [None]
